FAERS Safety Report 9527157 (Version 1)
Quarter: 2013Q3

REPORT INFORMATION
  Report Type: Spontaneous
  Country: CA (occurrence: CA)
  Receive Date: 20130916
  Receipt Date: 20130916
  Transmission Date: 20140515
  Serious: Yes (Hospitalization, Other)
  Sender: FDA-Public Use
  Company Number: CA-TAKEDA-2013TUS000580

PATIENT
  Sex: 0

DRUGS (7)
  1. ULORIC [Suspect]
     Dosage: 80 MG, QD
     Route: 048
     Dates: start: 201307, end: 20130827
  2. COLCHICINE [Concomitant]
  3. IRBESARTAN [Concomitant]
  4. AMLODIPINE [Concomitant]
  5. THYROXINE [Concomitant]
  6. ESOMEPRAZOLE [Concomitant]
  7. TYLENOL                            /00020001/ [Concomitant]

REACTIONS (5)
  - Embolism venous [Unknown]
  - Leukocytosis [Unknown]
  - Mean cell haemoglobin decreased [Unknown]
  - Dyspnoea [Recovering/Resolving]
  - Blood lactate dehydrogenase increased [Unknown]
